FAERS Safety Report 10716424 (Version 1)
Quarter: 2015Q1

REPORT INFORMATION
  Report Type: Spontaneous
  Country: US (occurrence: US)
  Receive Date: 20150116
  Receipt Date: 20150116
  Transmission Date: 20150721
  Serious: Yes (Hospitalization)
  Sender: FDA-Public Use
  Company Number: US-SA-2015SA004436

PATIENT
  Sex: Female
  Weight: 105 kg

DRUGS (1)
  1. AUBAGIO [Suspect]
     Active Substance: TERIFLUNOMIDE
     Indication: MULTIPLE SCLEROSIS
     Route: 048
     Dates: start: 20140707, end: 20140731

REACTIONS (3)
  - Confusional state [Unknown]
  - Aphonia [Unknown]
  - Asthenia [Unknown]

NARRATIVE: CASE EVENT DATE: 20140731
